FAERS Safety Report 25778205 (Version 1)
Quarter: 2025Q3

REPORT INFORMATION
  Report Type: Report from Study
  Country: CN (occurrence: CN)
  Receive Date: 20250909
  Receipt Date: 20250909
  Transmission Date: 20251020
  Serious: Yes (Other)
  Sender: ROCHE
  Company Number: CN-ROCHE-10000381174

PATIENT

DRUGS (2)
  1. RITUXIMAB [Suspect]
     Active Substance: RITUXIMAB
     Indication: Glomerulonephritis membranous
     Dosage: FOUR-DOSE REGIMEN (375 MG/M^2 INTRAVENOUSLY?ONCE WEEKLY FOR FOUR WEEKS)
     Route: 042
  2. RITUXIMAB [Suspect]
     Active Substance: RITUXIMAB
     Dosage: 1 G INTRAVENOUSLY ONCE EVERY TWO WEEKS FOR TWO?DOSES
     Route: 042

REACTIONS (7)
  - Pulmonary embolism [Unknown]
  - Off label use [Unknown]
  - Respiratory tract infection [Unknown]
  - Skin infection [Unknown]
  - Gastrointestinal haemorrhage [Unknown]
  - Cerebrovascular accident [Unknown]
  - Acute coronary syndrome [Unknown]
